FAERS Safety Report 6885210-6 (Version None)
Quarter: 2010Q3

REPORT INFORMATION
  Report Type: 
  Country: None (occurrence: None)
  Receive Date: 20100729
  Receipt Date: 20100729
  Transmission Date: 20110219
  Serious: Yes (Other)
  Sender: FDA-Public Use
  Company Number: None

PATIENT
  Age: 71 Year
  Sex: Male
  Weight: 104.3273 kg

DRUGS (1)
  1. MEPERIDINE HCL [Suspect]
     Indication: ANALGESIC THERAPY
     Dosage: 20MG 1X IV
     Route: 042
     Dates: start: 20100510, end: 20100510

REACTIONS (2)
  - INFUSION SITE PAIN [None]
  - URTICARIA [None]
